FAERS Safety Report 23614756 (Version 1)
Quarter: 2024Q1

REPORT INFORMATION
  Report Type: Spontaneous
  Country: GB (occurrence: GB)
  Receive Date: 20240311
  Receipt Date: 20240311
  Transmission Date: 20240410
  Serious: Yes (Other)
  Sender: FDA-Public Use
  Company Number: None

PATIENT
  Age: 77 Year
  Sex: Male
  Weight: 105 kg

DRUGS (11)
  1. VENTAVIS [Suspect]
     Active Substance: ILOPROST
     Indication: Peripheral ischaemia
     Dosage: 50 MICROGRAMS IN 25ML ADMINISTERED AT 1ML/HR FOR 6 HOURS ONCE A DAY;
     Route: 055
     Dates: start: 20240301, end: 20240303
  2. CITALOPRAM [Concomitant]
     Active Substance: CITALOPRAM HYDROBROMIDE
  3. CLOPIDOGREL [Concomitant]
     Active Substance: CLOPIDOGREL BISULFATE
  4. DULOXETINE [Concomitant]
     Active Substance: DULOXETINE
  5. ENOXAPARIN [Concomitant]
     Active Substance: ENOXAPARIN
  6. FAMOTIDINE [Concomitant]
     Active Substance: FAMOTIDINE
  7. FENOFIBRATE [Concomitant]
     Active Substance: FENOFIBRATE
  8. LAMOTRIGINE [Concomitant]
     Active Substance: LAMOTRIGINE
  9. NOVORAPID [Concomitant]
     Active Substance: INSULIN ASPART
  10. ACETAMINOPHEN [Concomitant]
     Active Substance: ACETAMINOPHEN
  11. TRESIBA [Concomitant]
     Active Substance: INSULIN DEGLUDEC

REACTIONS (1)
  - Seizure [Recovering/Resolving]

NARRATIVE: CASE EVENT DATE: 20240303
